FAERS Safety Report 24129915 (Version 3)
Quarter: 2025Q1

REPORT INFORMATION
  Report Type: Spontaneous
  Country: FR (occurrence: FR)
  Receive Date: 20240724
  Receipt Date: 20250102
  Transmission Date: 20250409
  Serious: Yes (Congenital Anomaly)
  Sender: ABBVIE
  Company Number: None

PATIENT
  Age: 33 Week
  Sex: Female
  Weight: 3.4 kg

DRUGS (13)
  1. CREON [Suspect]
     Active Substance: PANCRELIPASE AMYLASE\PANCRELIPASE LIPASE\PANCRELIPASE PROTEASE
     Indication: Maternal exposure timing unspecified
     Dosage: CREON 25 000 U,
     Route: 064
     Dates: start: 20231029
  2. SPIRIVA RESPIMAT [Suspect]
     Active Substance: TIOTROPIUM BROMIDE
     Indication: Maternal exposure timing unspecified
     Dosage: 2 DOSAGE FORM, QD
     Route: 064
     Dates: start: 20231029
  3. KALYDECO [Suspect]
     Active Substance: IVACAFTOR
     Indication: Maternal exposure timing unspecified
     Dosage: KALYDECO 150 MG,
     Route: 064
     Dates: start: 20231029
  4. COLISTIMETHATE SODIUM [Suspect]
     Active Substance: COLISTIMETHATE SODIUM
     Indication: Maternal exposure timing unspecified
     Dosage: 2 MILLION INTERNATIONAL UNIT, EVERY 12 HOURS
     Route: 064
     Dates: start: 20231029
  5. IPRATROPIUM BROMIDE\FENOTEROL HYDROBROMIDE [Suspect]
     Active Substance: FENOTEROL HYDROBROMIDE\IPRATROPIUM BROMIDE
     Indication: Maternal exposure timing unspecified
     Dosage: 1 UNIT, 8 HOURS
     Route: 064
     Dates: start: 20240516
  6. PULMOZYME [Suspect]
     Active Substance: DORNASE ALFA
     Indication: Maternal exposure timing unspecified
     Dosage: 2500 U/2,5 ML, SOLUTION POUR INHALATION PAR N?BULISEUR EN AMPOULE
     Route: 064
     Dates: start: 20231029, end: 20240516
  7. INNOVAIR [Suspect]
     Active Substance: BECLOMETHASONE DIPROPIONATE\FORMOTEROL
     Indication: Maternal exposure timing unspecified
     Dosage: INNOVAIR NEXTHALER 200 MICROGRAMMES/6 MICROGRAMMES PAR INHALATION, POUDRE POUR INHALATION
     Route: 064
     Dates: start: 20231029
  8. PANCRELIPASE [Suspect]
     Active Substance: PANCRELIPASE
     Indication: Maternal exposure timing unspecified
     Dosage: EUROBIOL 40 000 U,
     Route: 064
     Dates: start: 20231029
  9. SINGULAIR [Suspect]
     Active Substance: MONTELUKAST SODIUM
     Indication: Maternal exposure timing unspecified
     Route: 064
     Dates: start: 20240516
  10. ESOMEPRAZOLE [Suspect]
     Active Substance: ESOMEPRAZOLE
     Indication: Maternal exposure timing unspecified
     Dosage: 20 MILLIGRAM, QD
     Route: 064
     Dates: start: 20231029
  11. CETIRIZINE HYDROCHLORIDE [Suspect]
     Active Substance: CETIRIZINE HYDROCHLORIDE
     Indication: Maternal exposure timing unspecified
     Dosage: 20 MILLIGRAM, QD
     Route: 064
     Dates: start: 20231029
  12. ELEXACAFTOR\IVACAFTOR\TEZACAFTOR [Suspect]
     Active Substance: ELEXACAFTOR\IVACAFTOR\TEZACAFTOR
     Indication: Maternal exposure timing unspecified
     Dosage: KAFTRIO 75 MG/50 MG/100 MG,
     Route: 064
     Dates: start: 20231029
  13. ALBUTEROL [Suspect]
     Active Substance: ALBUTEROL
     Indication: Maternal exposure timing unspecified
     Route: 064
     Dates: start: 20231029, end: 20240510

REACTIONS (5)
  - Left-to-right cardiac shunt [Not Recovered/Not Resolved]
  - Amniotic fluid index increased [Recovered/Resolved]
  - Foetal macrosomia [Recovered/Resolved]
  - Foetal exposure during pregnancy [Unknown]
  - Conjunctivitis [Not Recovered/Not Resolved]

NARRATIVE: CASE EVENT DATE: 20240101
